FAERS Safety Report 16450185 (Version 2)
Quarter: 2019Q3

REPORT INFORMATION
  Report Type: Spontaneous
  Country: US (occurrence: US)
  Receive Date: 20190619
  Receipt Date: 20190731
  Transmission Date: 20191004
  Serious: Yes (Hospitalization, Other)
  Sender: FDA-Public Use
  Company Number: US-TORRENT-00008889

PATIENT
  Age: 34 Month
  Sex: Female

DRUGS (1)
  1. CYPROHEPTADINE HCL 2MG/5ML [Suspect]
     Active Substance: CYPROHEPTADINE HYDROCHLORIDE
     Indication: PRODUCT USED FOR UNKNOWN INDICATION
     Dates: start: 20180331

REACTIONS (2)
  - Burkholderia cepacia complex infection [Not Recovered/Not Resolved]
  - Acute respiratory failure [Unknown]

NARRATIVE: CASE EVENT DATE: 20190608
